FAERS Safety Report 6694954-0 (Version None)
Quarter: 2010Q2

REPORT INFORMATION
  Report Type: 
  Country: None (occurrence: None)
  Receive Date: 20100423
  Receipt Date: 20100416
  Transmission Date: 20101027
  Serious: Yes (Other)
  Sender: FDA-Public Use
  Company Number: JP-GENENTECH-300666

PATIENT
  Age: 49 Year
  Sex: Male

DRUGS (10)
  1. RITUXAN [Suspect]
     Indication: DIFFUSE LARGE B-CELL LYMPHOMA
  2. CYCLOPHOSPHAMIDE [Concomitant]
     Indication: DIFFUSE LARGE B-CELL LYMPHOMA
  3. DOXORUBICIN HCL [Concomitant]
     Indication: DIFFUSE LARGE B-CELL LYMPHOMA
  4. VINCRISTINE SULFATE [Concomitant]
     Indication: DIFFUSE LARGE B-CELL LYMPHOMA
  5. PREDNISOLONE [Concomitant]
     Indication: DIFFUSE LARGE B-CELL LYMPHOMA
  6. ETOPOSIDE [Concomitant]
     Indication: STEM CELL TRANSPLANT
  7. METHYLPREDNISOLONE [Concomitant]
     Indication: STEM CELL TRANSPLANT
  8. CYTARABINE [Concomitant]
     Indication: STEM CELL TRANSPLANT
  9. CISPLATIN [Concomitant]
     Indication: STEM CELL TRANSPLANT
  10. RANIMUSTINE [Concomitant]
     Indication: STEM CELL TRANSPLANT

REACTIONS (10)
  - CYTOMEGALOVIRUS INFECTION [None]
  - DIALYSIS [None]
  - HISTIOCYTOSIS HAEMATOPHAGIC [None]
  - HYPOXIA [None]
  - LIVER DISORDER [None]
  - METABOLIC ACIDOSIS [None]
  - PSEUDOMONAL SEPSIS [None]
  - PULMONARY OEDEMA [None]
  - STEM CELL TRANSPLANT [None]
  - URINE OUTPUT DECREASED [None]
